FAERS Safety Report 7077673-0 (Version None)
Quarter: 2010Q4

REPORT INFORMATION
  Report Type: 
  Country: None (occurrence: None)
  Receive Date: 20101021
  Receipt Date: 20101006
  Transmission Date: 20110411
  Serious: Yes (Other)
  Sender: FDA-Public Use
  Company Number: 2010MA003379

PATIENT
  Age: 35 Year
  Sex: Male

DRUGS (1)
  1. TRIAMCINOLONE ACETONIDE [Suspect]
     Dosage: 4 MG;IO
     Route: 031

REACTIONS (7)
  - MACULAR OEDEMA [None]
  - OPTIC DISC DISORDER [None]
  - PUPILLARY REFLEX IMPAIRED [None]
  - RETINAL ARTERY OCCLUSION [None]
  - RETINAL VASCULAR OCCLUSION [None]
  - SYPHILIS [None]
  - UVEITIS [None]
